FAERS Safety Report 7756714-9 (Version None)
Quarter: 2011Q3

REPORT INFORMATION
  Report Type: 
  Country: None (occurrence: None)
  Receive Date: 20110825
  Receipt Date: 20110711
  Transmission Date: 20111222
  Serious: No
  Sender: FDA-Public Use
  Company Number: 332788

PATIENT
  Age: 58 Year
  Sex: Female

DRUGS (2)
  1. VICTOZA [Suspect]
     Indication: TYPE 2 DIABETES MELLITUS
     Dosage: 0.6 MG, QD ; 1.2 MG, QD
     Dates: start: 20110625
  2. VICTOZA [Suspect]
     Indication: TYPE 2 DIABETES MELLITUS
     Dosage: 0.6 MG, QD ; 1.2 MG, QD
     Dates: end: 20110704

REACTIONS (3)
  - DIARRHOEA [None]
  - VOMITING [None]
  - NAUSEA [None]
